FAERS Safety Report 21765996 (Version 1)
Quarter: 2022Q4

REPORT INFORMATION
  Report Type: Spontaneous
  Country: RO (occurrence: RO)
  Receive Date: 20221222
  Receipt Date: 20221222
  Transmission Date: 20230112
  Serious: Yes (Life-Threatening)
  Sender: FDA-Public Use
  Company Number: None

PATIENT

DRUGS (1)
  1. VENTOLIN [Suspect]
     Active Substance: ALBUTEROL SULFATE
     Indication: Bronchiolitis
     Dosage: 0.5 DF, BID
     Route: 055
     Dates: start: 20221201, end: 20221202

REACTIONS (1)
  - Face oedema [Recovered/Resolved]

NARRATIVE: CASE EVENT DATE: 20221201
